FAERS Safety Report 17056050 (Version 1)
Quarter: 2019Q4

REPORT INFORMATION
  Report Type: Report from Study
  Country: EC (occurrence: EC)
  Receive Date: 20191121
  Receipt Date: 20191121
  Transmission Date: 20200122
  Serious: Yes (Other)
  Sender: FDA-Public Use
  Company Number: EC-EMD SERONO-9130148

PATIENT
  Sex: Female

DRUGS (1)
  1. REBIF [Suspect]
     Active Substance: INTERFERON BETA-1A
     Indication: MULTIPLE SCLEROSIS
     Dosage: 44 (UNITS UNSPECIFIED)
     Route: 058
     Dates: start: 20190415, end: 2019

REACTIONS (5)
  - Paranoia [Unknown]
  - Pyrexia [Not Recovered/Not Resolved]
  - Schizophrenia [Unknown]
  - Myalgia [Not Recovered/Not Resolved]
  - Chills [Not Recovered/Not Resolved]

NARRATIVE: CASE EVENT DATE: 2019
